FAERS Safety Report 15084847 (Version 1)
Quarter: 2018Q2

REPORT INFORMATION
  Report Type: Spontaneous
  Country: US (occurrence: US)
  Receive Date: 20180628
  Receipt Date: 20180628
  Transmission Date: 20180711
  Serious: Yes (Hospitalization)
  Sender: FDA-Public Use
  Company Number: US-RADIUS HEALTH, INC.-2018US000986

PATIENT
  Age: 60 Year
  Sex: Female
  Weight: 72.56 kg

DRUGS (3)
  1. TYMLOS [Suspect]
     Active Substance: ABALOPARATIDE
     Indication: OSTEOPOROSIS POSTMENOPAUSAL
     Dosage: 80 MCG, QD
     Route: 058
     Dates: start: 201805
  2. TYMLOS [Suspect]
     Active Substance: ABALOPARATIDE
     Indication: RHEUMATOID ARTHRITIS
  3. TYMLOS [Suspect]
     Active Substance: ABALOPARATIDE
     Indication: STRESS FRACTURE

REACTIONS (3)
  - Pneumonia bacterial [Unknown]
  - Musculoskeletal chest pain [Unknown]
  - Off label use [Unknown]

NARRATIVE: CASE EVENT DATE: 201805
